FAERS Safety Report 9425908 (Version 1)
Quarter: 2013Q3

REPORT INFORMATION
  Report Type: Spontaneous
  Country: DE (occurrence: DE)
  Receive Date: 20130729
  Receipt Date: 20130729
  Transmission Date: 20140515
  Serious: Yes (Hospitalization)
  Sender: FDA-Public Use
  Company Number: DE-B.I. PHARMACEUTICALS,INC./RIDGEFIELD-2013-DE-01925DE

PATIENT
  Age: 87 Year
  Sex: Female

DRUGS (9)
  1. PRADAXA [Suspect]
     Dosage: 220 MG
  2. HCT [Concomitant]
  3. MADOPAR [Concomitant]
  4. ALDACTONE [Concomitant]
  5. ALLOPURINOL [Concomitant]
  6. MIRTAZEPIN [Concomitant]
  7. RAMIPRIL [Concomitant]
  8. TORASEMID [Concomitant]
  9. OXAZEPAM [Concomitant]

REACTIONS (4)
  - Glomerular filtration rate decreased [Unknown]
  - Activated partial thromboplastin time prolonged [Unknown]
  - Blood creatinine increased [Unknown]
  - Haematoma [Not Recovered/Not Resolved]
